FAERS Safety Report 4363237-6 (Version None)
Quarter: 2004Q2

REPORT INFORMATION
  Report Type: 
  Country: None (occurrence: None)
  Receive Date: 20040518
  Receipt Date: 20040503
  Transmission Date: 20050107
  Serious: Yes (Other)
  Sender: FDA-Public Use
  Company Number: 2004-05-0040

PATIENT
  Age: 44 Year
  Sex: Male

DRUGS (2)
  1. CLARITIN [Suspect]
     Indication: RHINITIS
     Dosage: 10 MG BID ORAL
     Route: 048
     Dates: start: 20040430
  2. ALVEDON [Concomitant]

REACTIONS (1)
  - FACIAL PALSY [None]
